FAERS Safety Report 10159357 (Version 1)
Quarter: 2014Q2

REPORT INFORMATION
  Report Type: Spontaneous
  Country: MY (occurrence: None)
  Receive Date: 20140506
  Receipt Date: 20140506
  Transmission Date: 20141212
  Serious: Yes (Other)
  Sender: FDA-Public Use
  Company Number: IPC201404-000196

PATIENT
  Age: 37 Year
  Sex: Female

DRUGS (5)
  1. PROPRANOLOL HYDROCHLORIDE (PROPRANOLOL HYDROCHLORIDE) (PROPRANOLOL HYDROCHLORIDE) [Suspect]
     Indication: BASEDOW^S DISEASE
     Dosage: 10 MG THRICE DAILY
  2. PROPRANOLOL HYDROCHLORIDE (PROPRANOLOL HYDROCHLORIDE) (PROPRANOLOL HYDROCHLORIDE) [Suspect]
     Indication: HYPERTHYROIDISM
     Dosage: 10 MG THRICE DAILY
  3. CARBIMAZOLE (CARBIMAZOLE) (CARBIMAZOLE) [Suspect]
     Indication: BASEDOW^S DISEASE
  4. CARBIMAZOLE (CARBIMAZOLE) (CARBIMAZOLE) [Suspect]
     Indication: HYPERTHYROIDISM
  5. CARBAMAZEPINE (CARBAMAZEPINE) (CARBAMAZEPINE) [Suspect]
     Indication: EPILEPSY

REACTIONS (10)
  - Dizziness [None]
  - Clonic convulsion [None]
  - Somnolence [None]
  - Palpitations [None]
  - Hot flush [None]
  - Weight decreased [None]
  - Exophthalmos [None]
  - Drug interaction [None]
  - Hyperthyroidism [None]
  - Disease recurrence [None]
